FAERS Safety Report 16159863 (Version 1)
Quarter: 2019Q2

REPORT INFORMATION
  Report Type: Spontaneous
  Country: ES (occurrence: ES)
  Receive Date: 20190404
  Receipt Date: 20190404
  Transmission Date: 20190711
  Serious: Yes (Hospitalization)
  Sender: FDA-Public Use
  Company Number: ES-TEVA-2019-ES-1033221

PATIENT
  Age: 80 Year
  Sex: Male

DRUGS (3)
  1. METAMIZOL (111A) [Concomitant]
     Active Substance: METAMIZOL SODIUM
     Route: 042
     Dates: start: 20180406, end: 20180515
  2. LINEZOLID (1279A) [Suspect]
     Active Substance: LINEZOLID
     Indication: DEVICE RELATED INFECTION
     Route: 048
     Dates: start: 20180507, end: 20180515
  3. DOXAZOSINA (2387A) [Concomitant]
     Active Substance: DOXAZOSIN MESYLATE
     Dosage: 4 MILLIGRAM DAILY; 4 MG DIA
     Route: 048
     Dates: start: 20180406, end: 20180515

REACTIONS (2)
  - Lactic acidosis [Recovered/Resolved]
  - Acute kidney injury [Recovered/Resolved]

NARRATIVE: CASE EVENT DATE: 20180514
